FAERS Safety Report 6072840-7 (Version None)
Quarter: 2009Q1

REPORT INFORMATION
  Report Type: 
  Country: None (occurrence: None)
  Receive Date: 20090210
  Receipt Date: 20090203
  Transmission Date: 20090719
  Serious: Yes (Other)
  Sender: FDA-Public Use
  Company Number: GB-MERCK-0902GBR00020

PATIENT
  Age: 61 Year
  Sex: Male

DRUGS (1)
  1. ZETIA [Suspect]
     Route: 048

REACTIONS (3)
  - ARTHRALGIA [None]
  - BACK PAIN [None]
  - PAIN IN EXTREMITY [None]
